FAERS Safety Report 5835513-9 (Version None)
Quarter: 2008Q3

REPORT INFORMATION
  Report Type: 
  Country: None (occurrence: None)
  Receive Date: 20080806
  Receipt Date: 20080731
  Transmission Date: 20090109
  Serious: Yes (Death, Hospitalization)
  Sender: FDA-Public Use
  Company Number: A0721638A

PATIENT
  Age: 47 Year
  Sex: Female

DRUGS (4)
  1. WELLBUTRIN XL [Suspect]
     Indication: DEPRESSION
     Dosage: 750MG UNKNOWN
     Route: 048
     Dates: start: 20071214, end: 20071224
  2. PROVIGIL [Concomitant]
  3. FLUOXETINE [Concomitant]
  4. ALPRAZOLAM [Concomitant]

REACTIONS (3)
  - DEATH [None]
  - IRRITABILITY [None]
  - OVERDOSE [None]
